FAERS Safety Report 17439921 (Version 1)
Quarter: 2020Q1

REPORT INFORMATION
  Report Type: Spontaneous
  Country: US (occurrence: US)
  Receive Date: 20200218
  Receipt Date: 20200218
  Transmission Date: 20200409
  Serious: Yes (Death, Hospitalization)
  Sender: FDA-Public Use
  Company Number: None

PATIENT
  Age: 60 Year
  Sex: Male

DRUGS (2)
  1. HEPARIN (HEPARIN NA 250UNIT/ML INJ) [Suspect]
     Active Substance: HEPARIN SODIUM
     Indication: SHOCK HAEMORRHAGIC
  2. HEPARIN (HEPARIN NA 250UNIT/ML INJ) [Suspect]
     Active Substance: HEPARIN SODIUM
     Indication: RETROPERITONEAL HAEMORRHAGE
     Dates: start: 20191101, end: 20191115

REACTIONS (17)
  - Abdominal distension [None]
  - Hypotension [None]
  - Bilirubin conjugated increased [None]
  - Fluid overload [None]
  - Cholelithiasis [None]
  - Epistaxis [None]
  - Intensive care unit delirium [None]
  - Pulmonary hypertension [None]
  - Renal failure [None]
  - Encephalopathy [None]
  - Pain [None]
  - Coagulopathy [None]
  - Right ventricular failure [None]
  - Haemoglobin decreased [None]
  - Retroperitoneal haematoma [None]
  - Packed red blood cell transfusion [None]
  - Shock haemorrhagic [None]

NARRATIVE: CASE EVENT DATE: 20191106
